FAERS Safety Report 7545499-7 (Version None)
Quarter: 2011Q2

REPORT INFORMATION
  Report Type: 
  Country: None (occurrence: None)
  Receive Date: 20110613
  Receipt Date: 20110613
  Transmission Date: 20111010
  Serious: Yes (Hospitalization)
  Sender: FDA-Public Use
  Company Number: None

PATIENT
  Age: 73 Year
  Sex: Male
  Weight: 66 kg

DRUGS (1)
  1. METOLAZONE [Suspect]
     Dosage: 2.5 MG AM PO
     Route: 048
     Dates: start: 20101022, end: 20110512

REACTIONS (1)
  - METABOLIC ALKALOSIS [None]
